FAERS Safety Report 6928405-5 (Version None)
Quarter: 2010Q3

REPORT INFORMATION
  Report Type: 
  Country: None (occurrence: None)
  Receive Date: 20100817
  Receipt Date: 20100813
  Transmission Date: 20110219
  Serious: Yes (Hospitalization)
  Sender: FDA-Public Use
  Company Number: US-GILEAD-2010-0030779

PATIENT
  Sex: Female
  Weight: 115.32 kg

DRUGS (8)
  1. LETAIRIS [Suspect]
     Indication: PULMONARY ARTERIAL HYPERTENSION
     Route: 048
     Dates: start: 20081013
  2. REMODULIN [Concomitant]
     Indication: PULMONARY ARTERIAL HYPERTENSION
     Dates: start: 20100227
  3. FLOLAN [Concomitant]
     Indication: PULMONARY ARTERIAL HYPERTENSION
     Dates: start: 20100227
  4. FUROSEMIDE [Concomitant]
  5. ALDACTONE [Concomitant]
  6. OXYGEN [Concomitant]
  7. ALLOPURINOL [Concomitant]
  8. GLYBURIDE [Concomitant]

REACTIONS (1)
  - RIGHT VENTRICULAR FAILURE [None]
